FAERS Safety Report 8276049-8 (Version None)
Quarter: 2012Q2

REPORT INFORMATION
  Report Type: 
  Country: None (occurrence: None)
  Receive Date: 20120412
  Receipt Date: 20120405
  Transmission Date: 20120825
  Serious: Yes (Hospitalization)
  Sender: FDA-Public Use
  Company Number: CA-BAYER-2012-033201

PATIENT
  Age: 27 Year
  Sex: Female
  Weight: 55 kg

DRUGS (11)
  1. VITAMIN B-12 [Concomitant]
  2. WELLBUTRIN [Concomitant]
  3. FENTANYL CITRATE [Concomitant]
  4. ATIVAN [Concomitant]
  5. METOCLOPRAMIDE [Concomitant]
  6. ZOFRAN [Concomitant]
  7. CIPROFLOXACIN HCL [Suspect]
     Route: 065
  8. CETIRIZINE HCL [Concomitant]
  9. REMICADE [Suspect]
     Dosage: 300 MG, UNK
     Route: 065
  10. ZOPICLONE [Concomitant]
  11. PERCOCET [Concomitant]

REACTIONS (2)
  - DRUG HYPERSENSITIVITY [None]
  - PNEUMONIA [None]
